FAERS Safety Report 13347296 (Version 2)
Quarter: 2017Q1

REPORT INFORMATION
  Report Type: Spontaneous
  Country: US (occurrence: US)
  Receive Date: 20170317
  Receipt Date: 20170328
  Transmission Date: 20170428
  Serious: Yes (Other)
  Sender: FDA-Public Use
  Company Number: US-BAUSCH-BL-2017-006807

PATIENT
  Age: 82 Year
  Sex: Female
  Weight: 68.1 kg

DRUGS (3)
  1. DORZOLAMIDE HYDROCHLORIDE AND TIMOLOL MALEATE [Suspect]
     Active Substance: DORZOLAMIDE HYDROCHLORIDE\TIMOLOL MALEATE
     Indication: INTRAOCULAR PRESSURE DECREASED
     Dosage: IN EACH EYE
     Route: 047
     Dates: start: 20160919
  2. ATENOLOL. [Concomitant]
     Active Substance: ATENOLOL
     Indication: HYPERTENSION
     Dosage: ONE IN MORNING AND ONE AT NIGHT
  3. DORZOLAMIDE HYDROCHLORIDE AND TIMOLOL MALEATE [Suspect]
     Active Substance: DORZOLAMIDE HYDROCHLORIDE\TIMOLOL MALEATE
     Indication: EXFOLIATION SYNDROME

REACTIONS (1)
  - Urogenital haemorrhage [Not Recovered/Not Resolved]

NARRATIVE: CASE EVENT DATE: 201611
